FAERS Safety Report 12429461 (Version 2)
Quarter: 2016Q2

REPORT INFORMATION
  Report Type: Spontaneous
  Country: US (occurrence: US)
  Receive Date: 20160602
  Receipt Date: 20160617
  Transmission Date: 20160815
  Serious: No
  Sender: FDA-Public Use
  Company Number: US-BAYER-2016-108078

PATIENT
  Sex: Male
  Weight: 74.83 kg

DRUGS (2)
  1. MIRALAX [Suspect]
     Active Substance: POLYETHYLENE GLYCOL 3350
     Indication: HAEMORRHOIDS
     Dosage: 1 DF, QOD
  2. MIRALAX [Suspect]
     Active Substance: POLYETHYLENE GLYCOL 3350
     Indication: HAEMORRHOIDS
     Dosage: UNK UNK, BID
     Route: 048

REACTIONS (4)
  - Product use issue [None]
  - Product use issue [Recovered/Resolved]
  - Unevaluable event [Recovered/Resolved]
  - Off label use [None]
